FAERS Safety Report 12155523 (Version 5)
Quarter: 2017Q2

REPORT INFORMATION
  Report Type: Report from Study
  Country: US (occurrence: US)
  Receive Date: 20160307
  Receipt Date: 20170421
  Transmission Date: 20170829
  Serious: Yes (Hospitalization)
  Sender: FDA-Public Use
  Company Number: US-ACTELION-A-US2016-132330

PATIENT
  Age: 82 Year
  Sex: Male
  Weight: 112.47 kg

DRUGS (3)
  1. ELIQUIS [Concomitant]
     Active Substance: APIXABAN
  2. SILDENAFIL. [Concomitant]
     Active Substance: SILDENAFIL
  3. OPSUMIT [Suspect]
     Active Substance: MACITENTAN
     Indication: PULMONARY HYPERTENSION
     Dosage: 10 MG, QD
     Route: 048
     Dates: start: 20150924

REACTIONS (5)
  - Small intestinal obstruction [Unknown]
  - Asthenia [Unknown]
  - Gastrointestinal surgery [Unknown]
  - Constipation [Unknown]
  - Intestinal obstruction [Unknown]
